FAERS Safety Report 16171598 (Version 2)
Quarter: 2019Q2

REPORT INFORMATION
  Report Type: Report from Study
  Country: US (occurrence: US)
  Receive Date: 20190408
  Receipt Date: 20190502
  Transmission Date: 20190711
  Serious: Yes (Hospitalization)
  Sender: FDA-Public Use
  Company Number: US-ACTELION-A-US2019-185057

PATIENT
  Sex: Female
  Weight: 39 kg

DRUGS (4)
  1. UPTRAVI [Suspect]
     Active Substance: SELEXIPAG
     Dosage: 1600 MCG, BID
     Route: 048
     Dates: end: 2019
  2. UPTRAVI [Suspect]
     Active Substance: SELEXIPAG
     Indication: PULMONARY ARTERIAL HYPERTENSION
     Dosage: 200 MCG, BID
     Route: 048
  3. LETAIRIS [Concomitant]
     Active Substance: AMBRISENTAN
  4. REMODULIN [Concomitant]
     Active Substance: TREPROSTINIL

REACTIONS (9)
  - Headache [Unknown]
  - Asthenia [Unknown]
  - Nasal congestion [Unknown]
  - Head discomfort [Unknown]
  - Blood pressure abnormal [Unknown]
  - Dyspepsia [Unknown]
  - Dyspnoea [Unknown]
  - Fatigue [Unknown]
  - Diarrhoea [Unknown]
